FAERS Safety Report 25943955 (Version 2)
Quarter: 2025Q4

REPORT INFORMATION
  Report Type: Spontaneous
  Country: EU (occurrence: EU)
  Receive Date: 20251021
  Receipt Date: 20251023
  Transmission Date: 20260118
  Serious: Yes (Hospitalization)
  Sender: ASTELLAS
  Company Number: EU-ASTELLAS-2025-AER-057565

PATIENT
  Age: 75 Year
  Sex: Male

DRUGS (2)
  1. XOSPATA [Suspect]
     Active Substance: GILTERITINIB
     Indication: Acute myeloid leukaemia recurrent
     Dosage: 120MG (3 CYCLES)
     Route: 065
  2. XOSPATA [Suspect]
     Active Substance: GILTERITINIB
     Indication: FLT3 gene mutation
     Route: 065

REACTIONS (2)
  - Febrile neutropenia [Not Recovered/Not Resolved]
  - Bacterial infection [Not Recovered/Not Resolved]
